FAERS Safety Report 6061182-1 (Version None)
Quarter: 2009Q1

REPORT INFORMATION
  Report Type: 
  Country: None (occurrence: None)
  Receive Date: 20090202
  Receipt Date: 20090121
  Transmission Date: 20090719
  Serious: Yes (Hospitalization, Other)
  Sender: FDA-Public Use
  Company Number: JP-PFIZER INC-2009158303

PATIENT

DRUGS (2)
  1. FLUCAM [Suspect]
     Indication: MUSCULOSKELETAL PAIN
     Dosage: UNK MG, UNK
     Route: 048
  2. EUGLUCON [Concomitant]

REACTIONS (2)
  - HYPOGLYCAEMIA [None]
  - LOSS OF CONSCIOUSNESS [None]
